FAERS Safety Report 4326217-2 (Version None)
Quarter: 2004Q1

REPORT INFORMATION
  Report Type: 
  Country: None (occurrence: None)
  Receive Date: 20040324
  Receipt Date: 20040309
  Transmission Date: 20041129
  Serious: Yes (Hospitalization)
  Sender: FDA-Public Use
  Company Number: BRO-007167

PATIENT
  Age: 29 Year
  Sex: Female

DRUGS (6)
  1. IOPAMIDOL-300 [Suspect]
     Indication: COMPUTERISED TOMOGRAM
     Dosage: 80 ML; IV
     Route: 042
     Dates: start: 20040126, end: 20040126
  2. IOPAMIDOL-300 [Suspect]
     Indication: LIVER DISORDER
     Dosage: 80 ML; IV
     Route: 042
     Dates: start: 20040126, end: 20040126
  3. DIART, (AZOSEMIDE) [Concomitant]
  4. METHYCOBAL, (MECOBALAMIN) [Concomitant]
  5. ALINAMIN F , (FURSULTIAMINE) [Concomitant]
  6. NEUROTROPIN , (ORGAN LYSATE, STANDARDIZED [Concomitant]

REACTIONS (6)
  - ALANINE AMINOTRANSFERASE INCREASED [None]
  - ASPARTATE AMINOTRANSFERASE INCREASED [None]
  - CONDITION AGGRAVATED [None]
  - LIVER DISORDER [None]
  - MALAISE [None]
  - NAUSEA [None]
